FAERS Safety Report 18490947 (Version 1)
Quarter: 2020Q4

REPORT INFORMATION
  Report Type: Spontaneous
  Country: AU (occurrence: AU)
  Receive Date: 20201111
  Receipt Date: 20201111
  Transmission Date: 20210114
  Serious: Yes (Death, Hospitalization, Other)
  Sender: FDA-Public Use
  Company Number: AU-ABBVIE-14P-008-1254024-00

PATIENT
  Sex: Female

DRUGS (3)
  1. SINEMET [Concomitant]
     Active Substance: CARBIDOPA\LEVODOPA
     Indication: PRODUCT USED FOR UNKNOWN INDICATION
  2. DUODOPA [Suspect]
     Active Substance: CARBIDOPA\LEVODOPA
     Indication: PARKINSON^S DISEASE
     Dosage: CONSTANT DOSE,  24 HOURS/DAY?20 MG/ML 5 MG/ML
     Route: 050
     Dates: start: 201406
  3. DUODOPA [Suspect]
     Active Substance: CARBIDOPA\LEVODOPA

REACTIONS (7)
  - Syncope [Fatal]
  - Thrombosis [Unknown]
  - Loss of consciousness [Fatal]
  - Pulmonary embolism [Fatal]
  - Depressed level of consciousness [Fatal]
  - Splenic infarction [Fatal]
  - Cerebrovascular accident [Unknown]
